FAERS Safety Report 5986745-0 (Version None)
Quarter: 2008Q4

REPORT INFORMATION
  Report Type: 
  Country: None (occurrence: None)
  Receive Date: 20081203
  Receipt Date: 20081126
  Transmission Date: 20090506
  Serious: Yes (Death)
  Sender: FDA-Public Use
  Company Number: 2008JP005358

PATIENT
  Sex: Male

DRUGS (5)
  1. PROGRAF [Suspect]
     Indication: STEM CELL TRANSPLANT
  2. MERCAPTOPURINE [Concomitant]
  3. BUSULFAN (BUSULFAN) INJECTION [Concomitant]
  4. FLUDARABINE PHOSPHATE [Concomitant]
  5. L-PAM (MELPHALAN) [Concomitant]

REACTIONS (3)
  - SEPTIC SHOCK [None]
  - STAPHYLOCOCCAL SEPSIS [None]
  - VENOOCCLUSIVE DISEASE [None]
